FAERS Safety Report 13712285 (Version 1)
Quarter: 2017Q3

REPORT INFORMATION
  Report Type: Spontaneous
  Country: US (occurrence: US)
  Receive Date: 20170703
  Receipt Date: 20170703
  Transmission Date: 20171127
  Serious: No
  Sender: FDA-Public Use
  Company Number: US-JNJFOC-20170409043

PATIENT
  Sex: Male
  Weight: 91.63 kg

DRUGS (8)
  1. CORTISONE [Suspect]
     Active Substance: CORTISONE\HYDROCORTISONE
     Indication: PRODUCT USED FOR UNKNOWN INDICATION
     Route: 065
     Dates: start: 2017
  2. WELLBUTRIN [Concomitant]
     Active Substance: BUPROPION HYDROCHLORIDE
     Route: 065
  3. STELARA [Suspect]
     Active Substance: USTEKINUMAB
     Indication: CROHN^S DISEASE
     Dosage: 4VIALS
     Route: 042
     Dates: start: 201703
  4. CHOLESTYRAMINE. [Concomitant]
     Active Substance: CHOLESTYRAMINE
     Route: 065
  5. HYDROCHLOROTHIAZIDE. [Concomitant]
     Active Substance: HYDROCHLOROTHIAZIDE
     Route: 065
  6. CIALIS [Concomitant]
     Active Substance: TADALAFIL
     Route: 065
  7. MIRVASO [Concomitant]
     Active Substance: BRIMONIDINE TARTRATE
     Route: 065
  8. ATORVASTATIN [Concomitant]
     Active Substance: ATORVASTATIN
     Route: 065

REACTIONS (9)
  - Fatigue [Unknown]
  - Diarrhoea [Unknown]
  - Cough [Unknown]
  - Nausea [Unknown]
  - Headache [Unknown]
  - Eye swelling [Recovering/Resolving]
  - Flushing [Unknown]
  - Injection site pain [Unknown]
  - Sinusitis [Unknown]

NARRATIVE: CASE EVENT DATE: 2017
